FAERS Safety Report 6419440-4 (Version None)
Quarter: 2009Q4

REPORT INFORMATION
  Report Type: 
  Country: None (occurrence: None)
  Receive Date: 20091029
  Receipt Date: 20091023
  Transmission Date: 20100525
  Serious: Yes (Hospitalization)
  Sender: FDA-Public Use
  Company Number: CA-ASTRAZENECA-2009SE22703

PATIENT
  Sex: Male

DRUGS (1)
  1. ZOMIG [Suspect]
     Indication: MIGRAINE
     Dosage: 15-20 HALF TABLET PER MONTH
     Route: 048

REACTIONS (3)
  - HEADACHE [None]
  - HERNIA [None]
  - RENAL IMPAIRMENT [None]
